FAERS Safety Report 5571106-9 (Version None)
Quarter: 2007Q4

REPORT INFORMATION
  Report Type: 
  Country: None (occurrence: None)
  Receive Date: 20071221
  Receipt Date: 20071217
  Transmission Date: 20080405
  Serious: Yes (Hospitalization)
  Sender: FDA-Public Use
  Company Number: HK-MERCK-0712HKG00010

PATIENT
  Age: 49 Year
  Sex: Female

DRUGS (5)
  1. DECADRON [Suspect]
     Indication: HYPERSENSITIVITY
     Route: 065
     Dates: start: 20030101
  2. DECADRON [Suspect]
     Route: 065
     Dates: start: 20060101
  3. DECADRON [Suspect]
     Indication: RHEUMATOID ARTHRITIS
     Route: 065
     Dates: start: 20030101
  4. DECADRON [Suspect]
     Route: 065
     Dates: start: 20060101
  5. ELTROMBOPAG OLAMINE [Concomitant]
     Route: 065
     Dates: start: 20060101

REACTIONS (1)
  - PLATELET COUNT INCREASED [None]
